FAERS Safety Report 7490215-0 (Version None)
Quarter: 2011Q2

REPORT INFORMATION
  Report Type: 
  Country: None (occurrence: None)
  Receive Date: 20110512
  Receipt Date: 20110419
  Transmission Date: 20111010
  Serious: Yes (Disabling)
  Sender: FDA-Public Use
  Company Number: JP-022544

PATIENT
  Age: 24 Month
  Sex: Female
  Weight: 8.6 kg

DRUGS (10)
  1. FUROSEMIDE [Concomitant]
  2. FLUDARABINE PHOSPHATE [Suspect]
     Indication: STEM CELL TRANSPLANT
     Dosage: INJECTION 30 MG/M2, 30MGM2 PER DAY INTRAVENOUS
     Route: 042
     Dates: start: 20041103, end: 20041106
  3. GRANISETRON HCL [Concomitant]
  4. METHOTREXATE [Concomitant]
  5. PHENYTOIN [Concomitant]
  6. (OTHERS) [Concomitant]
  7. BUSULFAN [Suspect]
     Indication: STEM CELL TRANSPLANT
     Dosage: 42 MG/M2, 42MGM2 PER DAY INTRAVENOUS
     Route: 042
     Dates: start: 20041103, end: 20041106
  8. (FILGRASTIM) [Suspect]
     Indication: STEM CELL TRANSPLANT
     Dosage: INJECTION
     Dates: start: 20041116, end: 20041210
  9. TACROLIMUS [Concomitant]
  10. MELPHALAN HYDROCHLORIDE [Suspect]
     Indication: STEM CELL TRANSPLANT
     Dosage: INJECTION 90 MG/M2, 90 MG/M2 QD, INTRAVENOUS
     Route: 042
     Dates: start: 20041107, end: 20041108

REACTIONS (5)
  - ORAL PAIN [None]
  - PYREXIA [None]
  - MUCOUS MEMBRANE DISORDER [None]
  - C-REACTIVE PROTEIN INCREASED [None]
  - DIARRHOEA [None]
